FAERS Safety Report 9261174 (Version 1)
Quarter: 2013Q2

REPORT INFORMATION
  Report Type: Spontaneous
  Country: US (occurrence: US)
  Receive Date: 20130429
  Receipt Date: 20130429
  Transmission Date: 20140414
  Serious: No
  Sender: FDA-Public Use
  Company Number: US-AMGEN-USASP2013009011

PATIENT
  Age: 52 Year
  Sex: Female

DRUGS (16)
  1. EPOGEN [Suspect]
     Indication: NEPHROGENIC ANAEMIA
     Dosage: 30000 UNIT, QWK
     Route: 058
     Dates: start: 20110623
  2. EPOGEN [Suspect]
  3. SENSIPAR [Suspect]
     Indication: HYPERPARATHYROIDISM SECONDARY
     Dosage: UNK
  4. SENSIPAR [Suspect]
  5. ARIMIDEX [Concomitant]
     Dosage: UNK
  6. GLYBURIDE [Concomitant]
     Dosage: UNK
  7. RENVELA [Concomitant]
     Dosage: UNK
  8. COREG [Concomitant]
     Dosage: UNK
  9. LASIX                              /00032601/ [Concomitant]
     Dosage: UNK
  10. PROTONIX [Concomitant]
     Dosage: UNK
  11. TEMAZEPAM [Concomitant]
     Dosage: UNK
  12. DIAZEPAM [Concomitant]
     Dosage: UNK
  13. HEPARIN [Concomitant]
     Dosage: UNK
  14. COZAAR [Concomitant]
     Dosage: UNK
  15. DIALYVITE [Concomitant]
  16. MIRALAX                            /00754501/ [Concomitant]
     Dosage: UNK

REACTIONS (1)
  - Haemoglobin decreased [Not Recovered/Not Resolved]
